FAERS Safety Report 6039032-9 (Version None)
Quarter: 2009Q1

REPORT INFORMATION
  Report Type: 
  Country: None (occurrence: None)
  Receive Date: 20090115
  Receipt Date: 20090105
  Transmission Date: 20090719
  Serious: Yes (Death)
  Sender: FDA-Public Use
  Company Number: US-WYE-H07624509

PATIENT
  Age: 47 Year

DRUGS (2)
  1. TYGACIL [Suspect]
     Indication: ACINETOBACTER BACTERAEMIA
     Route: 042
  2. AMPICILLIN AND SULBACTAM [Concomitant]
     Indication: ACINETOBACTER INFECTION

REACTIONS (2)
  - ACINETOBACTER BACTERAEMIA [None]
  - DRUG INEFFECTIVE [None]
